FAERS Safety Report 8812630 (Version 1)
Quarter: 2012Q4

REPORT INFORMATION
  Report Type: 
  Country: MX (occurrence: MX)
  Receive Date: 20120927
  Receipt Date: 20120927
  Transmission Date: 20130627
  Serious: Yes (Hospitalization)
  Sender: FDA-Public Use
  Company Number: PHHY2012MX084191

PATIENT
  Age: 45 Year
  Sex: Male

DRUGS (1)
  1. CO-DIOVAN [Suspect]
     Indication: HYPERTENSION
     Dosage: 1 tablet per day (1 DF of 80/12.5 mg per day)
     Dates: start: 20090317

REACTIONS (1)
  - Myocardial infarction [Not Recovered/Not Resolved]
